FAERS Safety Report 21554349 (Version 1)
Quarter: 2022Q4

REPORT INFORMATION
  Report Type: Spontaneous
  Country: CZ (occurrence: CZ)
  Receive Date: 20221104
  Receipt Date: 20221104
  Transmission Date: 20230112
  Serious: Yes (Life-Threatening, Hospitalization, Disabling, Other)
  Sender: FDA-Public Use
  Company Number: None

PATIENT
  Age: 35 Year
  Sex: Female
  Weight: 79 kg

DRUGS (11)
  1. GILENYA [Suspect]
     Active Substance: FINGOLIMOD HYDROCHLORIDE
     Indication: Multiple sclerosis
     Dosage: 0.5 MG, QD (1-0-0)
     Route: 048
     Dates: start: 20211124, end: 20211128
  2. GILENYA [Suspect]
     Active Substance: FINGOLIMOD HYDROCHLORIDE
     Dosage: 1 DOSAGE FORM, Q48H (EVERY OTHER DAY FOR 1 MONTH)
     Route: 048
     Dates: start: 20211129, end: 20220115
  3. PREDNISONE [Suspect]
     Active Substance: PREDNISONE
     Indication: Product used for unknown indication
     Dosage: 40 MG (TAPERING OF PREDNISONE FROM INITIAL 40MG BY 5MG EVERY WEEK)
     Route: 048
     Dates: start: 202112, end: 20220123
  4. SOLU-MEDROL [Suspect]
     Active Substance: METHYLPREDNISOLONE SODIUM SUCCINATE
     Indication: Product used for unknown indication
     Dosage: 500 MG, QD
     Route: 042
     Dates: start: 20211228, end: 20211229
  5. SOLU-MEDROL [Suspect]
     Active Substance: METHYLPREDNISOLONE SODIUM SUCCINATE
     Dosage: CUMULATIVE DOSE OF 5 G
     Route: 042
     Dates: start: 20220101, end: 20220207
  6. SOLU-MEDROL [Suspect]
     Active Substance: METHYLPREDNISOLONE SODIUM SUCCINATE
     Dosage: 11.5 MG
     Route: 042
     Dates: start: 20220213, end: 20220422
  7. MAGNOSOLV (MAGNESIUM CARBONATE/MAGNESIUM OXIDE) [Concomitant]
     Indication: Product used for unknown indication
     Dosage: UNK
     Route: 065
  8. DEPO-MEDROL [Concomitant]
     Active Substance: METHYLPREDNISOLONE ACETATE
     Indication: Product used for unknown indication
     Dosage: 80 MG
     Route: 037
     Dates: start: 2022, end: 2022
  9. VENLAFAXINE [Concomitant]
     Active Substance: VENLAFAXINE HYDROCHLORIDE
     Indication: Product used for unknown indication
     Dosage: 150MG/75MG 1-0-0 (ALTERNATING DOSES, EVERY OTHER DAY)
     Route: 048
  10. MIRTAZAPINE [Concomitant]
     Active Substance: MIRTAZAPINE
     Indication: Product used for unknown indication
     Dosage: UNK
     Route: 065
  11. TYSABRI [Concomitant]
     Active Substance: NATALIZUMAB
     Indication: Product used for unknown indication
     Dosage: UNK
     Route: 065

REACTIONS (14)
  - Multiple sclerosis relapse [Recovered/Resolved with Sequelae]
  - COVID-19 [Recovered/Resolved with Sequelae]
  - Vertigo [Recovered/Resolved]
  - Lhermitte^s sign [Unknown]
  - Mobility decreased [Unknown]
  - Paraesthesia [Unknown]
  - Paraesthesia [Unknown]
  - Paraesthesia [Unknown]
  - Paraesthesia [Unknown]
  - Dysarthria [Unknown]
  - Urinary hesitation [Unknown]
  - Drug ineffective [Unknown]
  - Tongue biting [Unknown]
  - Nausea [Recovered/Resolved]

NARRATIVE: CASE EVENT DATE: 20220101
